FAERS Safety Report 15741250 (Version 1)
Quarter: 2018Q4

REPORT INFORMATION
  Report Type: Report from Study
  Country: US (occurrence: US)
  Receive Date: 20181219
  Receipt Date: 20181219
  Transmission Date: 20190205
  Serious: Yes (Other)
  Sender: FDA-Public Use
  Company Number: US-GLAXOSMITHKLINE-US2018GSK228447

PATIENT
  Age: 50 Year
  Sex: Female

DRUGS (1)
  1. BELIMUMAB [Suspect]
     Active Substance: BELIMUMAB
     Indication: SYSTEMIC LUPUS ERYTHEMATOSUS
     Dosage: ONCE PER MONTH FOR ONE YEAR
     Route: 042

REACTIONS (2)
  - Drug effect incomplete [Recovered/Resolved]
  - Systemic lupus erythematosus [Recovering/Resolving]
